FAERS Safety Report 19810421 (Version 7)
Quarter: 2022Q4

REPORT INFORMATION
  Report Type: Report from Study
  Country: CL (occurrence: None)
  Receive Date: 20210909
  Receipt Date: 20221115
  Transmission Date: 20230113
  Serious: Yes (Hospitalization)
  Sender: FDA-Public Use
  Company Number: CL-EISAI MEDICAL RESEARCH-EC-2021-099166

PATIENT
  Age: 55 Year
  Sex: Male
  Weight: 68 kg

DRUGS (11)
  1. LENVATINIB [Suspect]
     Active Substance: LENVATINIB
     Indication: Glioblastoma
     Route: 048
     Dates: start: 20210511, end: 20210831
  2. LENVATINIB [Suspect]
     Active Substance: LENVATINIB
     Dosage: UNKNOWN DOSE
     Route: 048
     Dates: start: 20210511
  3. PEMBROLIZUMAB [Suspect]
     Active Substance: PEMBROLIZUMAB
     Indication: Glioblastoma
     Route: 042
     Dates: start: 20210511, end: 20210713
  4. PEMBROLIZUMAB [Suspect]
     Active Substance: PEMBROLIZUMAB
     Route: 042
     Dates: start: 20210803, end: 20210803
  5. PEMBROLIZUMAB [Suspect]
     Active Substance: PEMBROLIZUMAB
     Route: 042
     Dates: start: 20210824, end: 20210824
  6. PEMBROLIZUMAB [Suspect]
     Active Substance: PEMBROLIZUMAB
     Dosage: UNKNOWN DOSE
     Route: 042
     Dates: start: 20210511, end: 20220803
  7. PEMBROLIZUMAB [Suspect]
     Active Substance: PEMBROLIZUMAB
     Dosage: UNKNOWN DOSE
     Route: 042
     Dates: start: 20210824
  8. METFORMIN [Concomitant]
     Active Substance: METFORMIN HYDROCHLORIDE
     Dates: start: 201804
  9. ACETAMINOPHEN [Concomitant]
     Active Substance: ACETAMINOPHEN
     Dates: start: 20210502
  10. ENALAPRIL [Concomitant]
     Active Substance: ENALAPRIL
     Dates: start: 20210614
  11. METOCLOPRAMIDE [Concomitant]
     Active Substance: METOCLOPRAMIDE
     Dates: start: 20210808, end: 20210813

REACTIONS (1)
  - Confusional state [Not Recovered/Not Resolved]

NARRATIVE: CASE EVENT DATE: 20210815
